FAERS Safety Report 17424455 (Version 1)
Quarter: 2020Q1

REPORT INFORMATION
  Report Type: Spontaneous
  Country: NL (occurrence: NL)
  Receive Date: 20200217
  Receipt Date: 20200217
  Transmission Date: 20200409
  Serious: Yes (Hospitalization)
  Sender: FDA-Public Use
  Company Number: NL-ROCHE-2544829

PATIENT
  Sex: Male
  Weight: 65 kg

DRUGS (9)
  1. BEVACIZUMAB. [Concomitant]
     Active Substance: BEVACIZUMAB
     Indication: RECTAL CANCER
     Dosage: DOSE: 1D500MG
     Route: 042
     Dates: start: 20191118
  2. CANNABIDIOL [Concomitant]
     Active Substance: CANNABIDIOL
     Indication: INCREASED APPETITE
  3. OXALIPLATIN. [Concomitant]
     Active Substance: OXALIPLATIN
     Indication: RECTAL CANCER
     Dosage: DOSE: 1D200MG
     Route: 042
     Dates: start: 20191118
  4. CAPECITABINE. [Suspect]
     Active Substance: CAPECITABINE
     Indication: RECTAL CANCER
     Dosage: STRENGTH: 500 MG, DOSE: 2D1500MG
     Route: 048
     Dates: start: 20191028, end: 20191111
  5. CANNABIDIOL [Concomitant]
     Active Substance: CANNABIDIOL
     Indication: NAUSEA
     Route: 048
  6. RIVAROXABAN [Concomitant]
     Active Substance: RIVAROXABAN
     Indication: THROMBOSIS
     Dosage: DOSE: 1D20MG
     Route: 048
     Dates: start: 20191008, end: 20191208
  7. CAPECITABINE. [Suspect]
     Active Substance: CAPECITABINE
     Indication: RECTAL CANCER
     Dosage: STRENGTH: 500 MG, DOSE: 2D1500MG
     Route: 048
     Dates: start: 20191118, end: 20191201
  8. BEVACIZUMAB. [Concomitant]
     Active Substance: BEVACIZUMAB
     Indication: RECTAL CANCER
     Dosage: DOSE: 1D500MG
     Route: 042
     Dates: start: 20191028
  9. OXALIPLATIN. [Concomitant]
     Active Substance: OXALIPLATIN
     Indication: RECTAL CANCER
     Dosage: DOSE: 1D200MG
     Route: 042
     Dates: start: 20191028

REACTIONS (5)
  - Gastrointestinal inflammation [Recovering/Resolving]
  - Diarrhoea [Recovering/Resolving]
  - Pneumonia aspiration [Recovering/Resolving]
  - Nausea [Recovering/Resolving]
  - Abdominal pain [Recovering/Resolving]

NARRATIVE: CASE EVENT DATE: 20191128
